FAERS Safety Report 6804956-9 (Version None)
Quarter: 2010Q2

REPORT INFORMATION
  Report Type: 
  Country: None (occurrence: None)
  Receive Date: 20100628
  Receipt Date: 20100628
  Transmission Date: 20101027
  Serious: No
  Sender: FDA-Public Use
  Company Number: None

PATIENT
  Sex: Male
  Weight: 118.3888 kg

DRUGS (1)
  1. ASPIRIN [Suspect]
     Indication: BLOOD DISORDER
     Dosage: 325 MG DAILY OVER THE COUNTER ASPIRIN
     Dates: start: 20100601, end: 20100612

REACTIONS (3)
  - ABDOMINAL DISCOMFORT [None]
  - DISORIENTATION [None]
  - FEELING ABNORMAL [None]
